FAERS Safety Report 8563136 (Version 2)
Quarter: 2014Q4

REPORT INFORMATION
  Report Type: Spontaneous
  Country: US (occurrence: US)
  Receive Date: 20120515
  Receipt Date: 20141222
  Transmission Date: 20150529
  Serious: Yes (Hospitalization, Disabling)
  Sender: FDA-Public Use
  Company Number: US-MERCK-1205USA01849

PATIENT
  Sex: Male
  Weight: 80.45 kg

DRUGS (1)
  1. PROPECIA [Suspect]
     Active Substance: FINASTERIDE
     Indication: ANDROGENETIC ALOPECIA
     Dosage: 1 MG, QD
     Route: 048
     Dates: start: 200201, end: 200406

REACTIONS (13)
  - Meniscus removal [Unknown]
  - Sexual dysfunction [Unknown]
  - Ejaculation failure [Unknown]
  - Varicocele [Unknown]
  - Cognitive disorder [Unknown]
  - Libido decreased [Not Recovered/Not Resolved]
  - Depression [Unknown]
  - Papilloma excision [Unknown]
  - Hernia repair [Unknown]
  - Anxiety [Unknown]
  - Erectile dysfunction [Not Recovered/Not Resolved]
  - Skin papilloma [Unknown]
  - Rash [Unknown]

NARRATIVE: CASE EVENT DATE: 20020517
